FAERS Safety Report 5067182-2 (Version None)
Quarter: 2006Q3

REPORT INFORMATION
  Report Type: 
  Country: None (occurrence: None)
  Receive Date: 20060726
  Receipt Date: 20060719
  Transmission Date: 20061208
  Serious: Yes (Hospitalization)
  Sender: FDA-Public Use
  Company Number: THQ2006A00683

PATIENT
  Age: 75 Year
  Sex: Male

DRUGS (4)
  1. LEUPROLIDE ACETATE [Suspect]
     Indication: PROSTATE CANCER
     Dosage: 22 5 MG (22.5 MG, 1 IN 3 M) INJECTION
     Dates: start: 20060406
  2. GLIPIZIDE [Concomitant]
  3. BENDROFLUMETHIAZIDE [Concomitant]
  4. QUINAPRIL [Concomitant]

REACTIONS (9)
  - AORTIC ARTERIOSCLEROSIS [None]
  - ATRIOVENTRICULAR BLOCK SECOND DEGREE [None]
  - AV DISSOCIATION [None]
  - CHRONIC OBSTRUCTIVE PULMONARY DISEASE [None]
  - DIZZINESS [None]
  - MITRAL VALVE INCOMPETENCE [None]
  - PNEUMONITIS [None]
  - TRICUSPID VALVE INCOMPETENCE [None]
  - VENTRICULAR EXTRASYSTOLES [None]
